FAERS Safety Report 16758760 (Version 1)
Quarter: 2019Q3

REPORT INFORMATION
  Report Type: Spontaneous
  Country: DE (occurrence: DE)
  Receive Date: 20190830
  Receipt Date: 20190830
  Transmission Date: 20191005
  Serious: Yes (Hospitalization, Congenital Anomaly, Other)
  Sender: FDA-Public Use
  Company Number: DE-ALKEM LABORATORIES LIMITED-DE-ALKEM-2017-02255

PATIENT
  Age: 1 Day
  Sex: Male
  Weight: 4 kg

DRUGS (4)
  1. ABILIFY [Suspect]
     Active Substance: ARIPIPRAZOLE
     Dosage: UNKNOWN
     Route: 064
  2. AKINETON [Suspect]
     Active Substance: BIPERIDEN HYDROCHLORIDE
     Dosage: UNKNOWN
     Route: 064
  3. QUETIAPINE FUMARATE. [Suspect]
     Active Substance: QUETIAPINE FUMARATE
     Dosage: UNKNOWN
     Route: 064
  4. GRIPPEIMPFSTOFF [Suspect]
     Active Substance: INFLUENZA VIRUS VACCINE
     Dosage: UNKNOWN
     Route: 064

REACTIONS (6)
  - Transposition of the great vessels [Unknown]
  - Large for dates baby [Recovered/Resolved]
  - Ventricular septal defect [Unknown]
  - Aortic stenosis [Unknown]
  - Atrial septal defect [Unknown]
  - Foetal exposure during pregnancy [Unknown]

NARRATIVE: CASE EVENT DATE: 20170104
